FAERS Safety Report 5891655-3 (Version None)
Quarter: 2008Q3

REPORT INFORMATION
  Report Type: 
  Country: None (occurrence: None)
  Receive Date: 20080922
  Receipt Date: 20080916
  Transmission Date: 20090109
  Serious: Yes (Other)
  Sender: FDA-Public Use
  Company Number: JP-BRISTOL-MYERS SQUIBB COMPANY-14337349

PATIENT
  Age: 40 Year

DRUGS (4)
  1. DESYREL [Suspect]
     Route: 048
  2. ALPRAZOLAM [Suspect]
  3. FLUVOXAMINE MALEATE [Suspect]
  4. FLUNITRAZEPAM [Suspect]

REACTIONS (1)
  - NEUROLEPTIC MALIGNANT SYNDROME [None]
